FAERS Safety Report 7065933-9 (Version None)
Quarter: 2010Q4

REPORT INFORMATION
  Report Type: 
  Country: None (occurrence: None)
  Receive Date: 20101027
  Receipt Date: 20101022
  Transmission Date: 20110411
  Serious: Yes (Hospitalization)
  Sender: FDA-Public Use
  Company Number: GB-AMGEN-GBRCT2010001089

PATIENT
  Sex: Male

DRUGS (13)
  1. PANITUMUMAB [Suspect]
     Indication: GASTROOESOPHAGEAL CANCER
     Dosage: UNK
     Dates: start: 20100511
  2. EPIRUBICIN [Suspect]
     Indication: GASTROOESOPHAGEAL CANCER
     Dosage: UNK
     Dates: start: 20100511
  3. OXALIPLATIN [Suspect]
     Indication: GASTROOESOPHAGEAL CANCER
     Dosage: UNK
     Dates: start: 20100511
  4. CAPECITABINE [Suspect]
     Indication: GASTROOESOPHAGEAL CANCER
     Dosage: UNK
     Dates: start: 20100511, end: 20101018
  5. HYDROCORTISONE [Concomitant]
     Dosage: 1 %, BID
     Dates: start: 20100712
  6. GAVISCON                           /00237601/ [Concomitant]
     Dosage: 10 ML, PRN
     Dates: start: 20100701
  7. CHLORPHEMINE [Concomitant]
     Dosage: 4 MG, QD
     Route: 048
     Dates: start: 20100701
  8. LORAZEPAM [Concomitant]
     Dosage: 1 MG, QD
     Route: 048
     Dates: start: 20100701
  9. PARACETAMOL [Concomitant]
     Dosage: 1 G, QD
     Route: 048
     Dates: start: 20100701
  10. DEXAMETHASONE [Concomitant]
     Dosage: 4 MG, BID
     Dates: start: 20100511
  11. AMOXICILLIN [Concomitant]
     Dosage: 500 MG, BID
     Dates: start: 20100820, end: 20100907
  12. CLARITHROMYCIN [Concomitant]
     Dosage: 500 MG, BID
     Dates: start: 20100909
  13. CO-AMOXICLAV                       /00756801/ [Concomitant]
     Dosage: 625 MG, TID
     Dates: start: 20100712, end: 20101003

REACTIONS (1)
  - LOWER RESPIRATORY TRACT INFECTION [None]
